FAERS Safety Report 8276699-9 (Version None)
Quarter: 2012Q2

REPORT INFORMATION
  Report Type: 
  Country: None (occurrence: None)
  Receive Date: 20120412
  Receipt Date: 20120412
  Transmission Date: 20120825
  Serious: No
  Sender: FDA-Public Use
  Company Number: None

PATIENT
  Sex: Female

DRUGS (1)
  1. AVELOX [Suspect]
     Indication: CHRONIC OBSTRUCTIVE PULMONARY DISEASE
     Dosage: 400
     Route: 041
     Dates: start: 20120306, end: 20120306

REACTIONS (3)
  - INFUSION RELATED REACTION [None]
  - ERYTHEMA [None]
  - PRURITUS [None]
